FAERS Safety Report 9296635 (Version 3)
Quarter: 2013Q3

REPORT INFORMATION
  Report Type: Spontaneous
  Country: FR (occurrence: FR)
  Receive Date: 20130517
  Receipt Date: 20130708
  Transmission Date: 20140515
  Serious: Yes (Other)
  Sender: FDA-Public Use
  Company Number: PHHY2013FR049227

PATIENT
  Age: 46 Year
  Sex: Female
  Weight: 63 kg

DRUGS (2)
  1. SIGNIFOR [Suspect]
     Indication: PITUITARY-DEPENDENT CUSHING^S SYNDROME
     Dosage: 0.6 UG, BID
     Route: 058
     Dates: start: 20120410, end: 20121105
  2. SIGNIFOR [Suspect]
     Dosage: 0.6 MG, QD
     Route: 058
     Dates: start: 20121106

REACTIONS (10)
  - Retinal oedema [Recovering/Resolving]
  - Visual acuity reduced [Recovering/Resolving]
  - Amnesia [Not Recovered/Not Resolved]
  - Eating disorder [Unknown]
  - Disturbance in attention [Not Recovered/Not Resolved]
  - Breast pain [Not Recovered/Not Resolved]
  - Dry mouth [Not Recovered/Not Resolved]
  - Diarrhoea [Recovering/Resolving]
  - Nausea [Recovering/Resolving]
  - Fatigue [Not Recovered/Not Resolved]
